FAERS Safety Report 5054008-6 (Version None)
Quarter: 2006Q3

REPORT INFORMATION
  Report Type: 
  Country: None (occurrence: None)
  Receive Date: 20060713
  Receipt Date: 20060630
  Transmission Date: 20061208
  Serious: No
  Sender: FDA-Public Use
  Company Number: 2006-02597

PATIENT
  Age: 53 Year
  Sex: Female

DRUGS (1)
  1. FERRLECIT [Suspect]
     Indication: ANAEMIA
     Dosage: 125 MG, DAILY, INTRAVENOUS
     Route: 042
     Dates: start: 20060609, end: 20060609

REACTIONS (1)
  - ANGIONEUROTIC OEDEMA [None]
